FAERS Safety Report 14276666 (Version 3)
Quarter: 2018Q4

REPORT INFORMATION
  Report Type: Spontaneous
  Country: US (occurrence: US)
  Receive Date: 20171211
  Receipt Date: 20181207
  Transmission Date: 20190204
  Serious: Yes (Hospitalization, Disabling, Other)
  Sender: FDA-Public Use
  Company Number: US-OTSUKA-2017_018071

PATIENT
  Age: 42 Year
  Sex: Female

DRUGS (2)
  1. ABILIFY [Suspect]
     Active Substance: ARIPIPRAZOLE
     Indication: SCHIZOPHRENIA
     Dosage: 30 MG, QD
     Route: 065
     Dates: start: 2008, end: 2011
  2. ABILIFY [Suspect]
     Active Substance: ARIPIPRAZOLE
     Indication: BIPOLAR DISORDER
     Dosage: UNK
     Route: 065

REACTIONS (18)
  - Obsessive-compulsive disorder [Unknown]
  - Injury [Unknown]
  - Gambling disorder [Recovered/Resolved]
  - Eating disorder [Recovered/Resolved]
  - Compulsive shopping [Recovered/Resolved]
  - Weight increased [Unknown]
  - Sexually transmitted disease [Unknown]
  - Theft [Unknown]
  - Impulsive behaviour [Unknown]
  - Condition aggravated [Unknown]
  - Pain [Unknown]
  - Divorced [Unknown]
  - Disability [Unknown]
  - Emotional distress [Unknown]
  - Economic problem [Unknown]
  - Bankruptcy [Unknown]
  - Compulsive sexual behaviour [Unknown]
  - Anxiety [Unknown]

NARRATIVE: CASE EVENT DATE: 200810
